FAERS Safety Report 9152915 (Version 2)
Quarter: 2013Q2

REPORT INFORMATION
  Report Type: Spontaneous
  Country: CO (occurrence: CO)
  Receive Date: 20130308
  Receipt Date: 20130402
  Transmission Date: 20140414
  Serious: Yes (Other)
  Sender: FDA-Public Use
  Company Number: CO-VERTEX PHARMACEUTICALS INC.-2013-003255

PATIENT
  Age: 59 Year
  Sex: Female
  Weight: 85 kg

DRUGS (3)
  1. INCIVO [Suspect]
     Indication: HEPATITIS C
     Dosage: 750 MG, TID (EVERY 8 HOUR)
     Route: 048
     Dates: start: 20130105
  2. RIBAVIRIN [Concomitant]
     Indication: HEPATITIS C
     Dosage: DOSAGE FORM: TABLET
     Route: 048
     Dates: start: 20130105
  3. INTERFERON ALFA [Concomitant]
     Indication: HEPATITIS C
     Dosage: DOSAGE FORM: AMP SC.
     Route: 058

REACTIONS (6)
  - Anorectal disorder [Unknown]
  - Abdominal distension [Unknown]
  - Asthenia [Unknown]
  - Dizziness [Unknown]
  - Vomiting [Unknown]
  - Nausea [Unknown]
